FAERS Safety Report 9326315 (Version 1)
Quarter: 2013Q2

REPORT INFORMATION
  Report Type: Spontaneous
  Country: US (occurrence: None)
  Receive Date: 20130603
  Receipt Date: 20130603
  Transmission Date: 20140414
  Serious: Yes (Hospitalization)
  Sender: FDA-Public Use
  Company Number: None

PATIENT
  Age: 41 Year
  Sex: Male
  Weight: 89.7 kg

DRUGS (4)
  1. BEVACIZUMAB (RHUMAB VEGF) (704865) [Suspect]
  2. CARBOPLATIN [Suspect]
  3. CETUXIMAB (ERBITUX) (714692) [Suspect]
  4. PACLITAXEL (TAXOL) [Suspect]

REACTIONS (6)
  - Interstitial lung disease [None]
  - Respiratory failure [None]
  - Pneumomediastinum [None]
  - Pulmonary embolism [None]
  - Septic shock [None]
  - Deep vein thrombosis [None]
